FAERS Safety Report 11783481 (Version 2)
Quarter: 2015Q4

REPORT INFORMATION
  Report Type: Spontaneous
  Country: US (occurrence: US)
  Receive Date: 20151127
  Receipt Date: 20151216
  Transmission Date: 20160305
  Serious: Yes (Death)
  Sender: FDA-Public Use
  Company Number: US-BAYER-2015-468843

PATIENT
  Age: 71 Year
  Sex: Male
  Weight: 81.63 kg

DRUGS (2)
  1. ONE-A-DAY MENS VITACRAVES GUMMIES [Suspect]
     Active Substance: MINERALS\VITAMINS
     Dosage: 1 DF, QD
     Route: 048
  2. BAYER GENUINE ASPIRIN [Suspect]
     Active Substance: ASPIRIN
     Indication: ARTHRALGIA
     Dosage: UNK, PRN
     Route: 048

REACTIONS (2)
  - Product use issue [None]
  - Death [Fatal]
